FAERS Safety Report 7347673-1 (Version None)
Quarter: 2011Q1

REPORT INFORMATION
  Report Type: 
  Country: None (occurrence: None)
  Receive Date: 20110311
  Receipt Date: 20110302
  Transmission Date: 20110831
  Serious: Yes (Death)
  Sender: FDA-Public Use
  Company Number: A0917430A

PATIENT
  Age: 63 Year
  Sex: Female
  Weight: 207 kg

DRUGS (3)
  1. TRACLEER [Concomitant]
     Dosage: 125MG TWICE PER DAY
     Route: 048
  2. VIAGRA [Concomitant]
     Dosage: 100MG THREE TIMES PER DAY
  3. FLOLAN [Suspect]
     Indication: PULMONARY ARTERIAL HYPERTENSION
     Route: 065
     Dates: start: 20030101, end: 20110223

REACTIONS (2)
  - GENERAL PHYSICAL HEALTH DETERIORATION [None]
  - DEATH [None]
